FAERS Safety Report 6938302-7 (Version None)
Quarter: 2010Q3

REPORT INFORMATION
  Report Type: 
  Country: None (occurrence: None)
  Receive Date: 20100824
  Receipt Date: 20100812
  Transmission Date: 20110219
  Serious: Yes (Other)
  Sender: FDA-Public Use
  Company Number: US-PFIZER INC-A214776

PATIENT
  Sex: Female
  Weight: 66.213 kg

DRUGS (4)
  1. ZOLOFT [Suspect]
     Indication: DEPRESSION
     Dosage: 150 MG, 1X/DAY
     Route: 048
     Dates: start: 19960601, end: 19961201
  2. ZOLOFT [Suspect]
     Indication: PAIN
  3. VICODIN [Concomitant]
     Dosage: UNK
     Route: 048
  4. ATIVAN [Concomitant]
     Dosage: UNK
     Route: 048

REACTIONS (14)
  - ACNE [None]
  - BASAL CELL CARCINOMA [None]
  - DRUG ERUPTION [None]
  - ERYTHEMA [None]
  - HYPERHIDROSIS [None]
  - HYPERSENSITIVITY [None]
  - INSOMNIA [None]
  - NEOPLASM MALIGNANT [None]
  - PHOTOSENSITIVITY REACTION [None]
  - PSYCHOMOTOR HYPERACTIVITY [None]
  - RASH [None]
  - RASH PUSTULAR [None]
  - SKIN CANCER [None]
  - SKIN DISORDER [None]
